FAERS Safety Report 8611259-9 (Version None)
Quarter: 2012Q3

REPORT INFORMATION
  Report Type: 
  Country: None (occurrence: None)
  Receive Date: 20120822
  Receipt Date: 20120816
  Transmission Date: 20120928
  Serious: Yes (Other)
  Sender: FDA-Public Use
  Company Number: JP-ASTELLAS-2012JP007726

PATIENT
  Sex: Female

DRUGS (3)
  1. PLETAL [Concomitant]
     Route: 048
  2. VESICARE [Suspect]
     Route: 048
  3. FAMOTIDINE [Suspect]
     Route: 048

REACTIONS (2)
  - ELECTROCARDIOGRAM QT PROLONGED [None]
  - VENTRICULAR TACHYCARDIA [None]
